FAERS Safety Report 24722140 (Version 2)
Quarter: 2024Q4

REPORT INFORMATION
  Report Type: Spontaneous
  Country: CN (occurrence: CN)
  Receive Date: 20241211
  Receipt Date: 20241223
  Transmission Date: 20250115
  Serious: Yes (Other)
  Sender: BAYER HEALTHCARE PHARMACEUTICALS INC.
  Company Number: CN-BAYER-2024A175457

PATIENT
  Age: 80 Year
  Sex: Female
  Weight: 33.8 kg

DRUGS (1)
  1. STIVARGA [Suspect]
     Active Substance: REGORAFENIB MONOHYDRATE
     Indication: Colon cancer
     Dosage: 80 MG, QD
     Route: 048
     Dates: start: 20241107, end: 202411

REACTIONS (8)
  - Diarrhoea [Recovering/Resolving]
  - Flushing [Recovering/Resolving]
  - Exfoliative rash [Recovering/Resolving]
  - Decreased appetite [None]
  - Hypoaesthesia [None]
  - Muscular weakness [None]
  - Incorrect dose administered [None]
  - Product prescribing issue [None]

NARRATIVE: CASE EVENT DATE: 20241101
